FAERS Safety Report 12546524 (Version 2)
Quarter: 2016Q3

REPORT INFORMATION
  Report Type: Spontaneous
  Country: JP (occurrence: JP)
  Receive Date: 20160711
  Receipt Date: 20160725
  Transmission Date: 20161109
  Serious: Yes (Other)
  Sender: FDA-Public Use
  Company Number: JP-WATSON-2016-14771

PATIENT
  Age: 33 Year
  Sex: Female
  Weight: 58 kg

DRUGS (9)
  1. ROCURONIUM [Concomitant]
     Active Substance: ROCURONIUM BROMIDE
     Indication: ANAESTHESIA
     Dosage: 40 MG, UNK
     Route: 042
  2. REMIFENTANIL (UNKNOWN) [Suspect]
     Active Substance: REMIFENTANIL
     Indication: MAINTENANCE OF ANAESTHESIA
     Dosage: 0.1-0.25 UG/KG
     Route: 058
  3. DESFLURANE. [Concomitant]
     Active Substance: DESFLURANE
     Indication: MAINTENANCE OF ANAESTHESIA
     Dosage: UNK
     Route: 065
  4. FENTANYL (UNKNOWN) [Suspect]
     Active Substance: FENTANYL
     Indication: INDUCTION OF ANAESTHESIA
     Dosage: 100 ?G, UNK
     Route: 042
  5. FENTANYL (UNKNOWN) [Suspect]
     Active Substance: FENTANYL
     Indication: ANAESTHESIA
     Dosage: 100 ?G, UNK
     Route: 042
  6. ROCURONIUM [Concomitant]
     Active Substance: ROCURONIUM BROMIDE
     Indication: INDUCTION OF ANAESTHESIA
  7. FENTANYL (UNKNOWN) [Suspect]
     Active Substance: FENTANYL
     Dosage: 100 ?G, UNK
     Route: 058
  8. REMIFENTANIL (UNKNOWN) [Suspect]
     Active Substance: REMIFENTANIL
     Indication: INDUCTION OF ANAESTHESIA
     Dosage: 0.3 ?G/KG, UNK
     Route: 042
  9. PROPOFOL. [Concomitant]
     Active Substance: PROPOFOL
     Indication: INDUCTION OF ANAESTHESIA
     Dosage: 120 MG, UNK
     Route: 042

REACTIONS (5)
  - Loss of consciousness [Recovered/Resolved]
  - Incorrect route of drug administration [Recovered/Resolved]
  - Peripheral swelling [Recovering/Resolving]
  - Accidental exposure to product [Recovered/Resolved]
  - Respiratory depression [Recovered/Resolved]
